FAERS Safety Report 4325436-9 (Version None)
Quarter: 2004Q1

REPORT INFORMATION
  Report Type: 
  Country: None (occurrence: None)
  Receive Date: 20040329
  Receipt Date: 20040316
  Transmission Date: 20041129
  Serious: Yes (Other)
  Sender: FDA-Public Use
  Company Number: PHRM2004FR01273

PATIENT
  Sex: Female

DRUGS (2)
  1. TAREG [Suspect]
     Route: 048
     Dates: start: 20020501
  2. HEMI-DAONIL [Concomitant]

REACTIONS (3)
  - DYSPNOEA [None]
  - DYSPNOEA EXACERBATED [None]
  - PEAK EXPIRATORY FLOW RATE DECREASED [None]
